FAERS Safety Report 8911007 (Version 2)
Quarter: 2013Q1

REPORT INFORMATION
  Report Type: Spontaneous
  Country: IT (occurrence: IT)
  Receive Date: 20121115
  Receipt Date: 20130102
  Transmission Date: 20140127
  Serious: Yes (Hospitalization)
  Sender: FDA-Public Use
  Company Number: IT-UCBSA-070569

PATIENT
  Sex: Female

DRUGS (4)
  1. KEPPRA [Suspect]
     Indication: EPILEPSY
     Dosage: 10TABLETS
     Route: 048
     Dates: start: 20120401, end: 20121024
  2. CARDIOASPIRIN [Concomitant]
     Indication: CEREBROVASCULAR DISORDER
     Route: 048
     Dates: start: 20120401, end: 20121019
  3. QUETIAPINA TEVA [Concomitant]
     Dosage: 25 MG, DOSE PER INTAKE:1DF
     Route: 048
     Dates: start: 20120401, end: 20121019
  4. DILTIAZEM DOROM [Concomitant]
     Route: 048
     Dates: start: 20120401, end: 20121019

REACTIONS (1)
  - Thrombocytopenia [Recovered/Resolved]
